FAERS Safety Report 9402073 (Version 1)
Quarter: 2013Q3

REPORT INFORMATION
  Report Type: Spontaneous
  Country: DE (occurrence: DE)
  Receive Date: 20130716
  Receipt Date: 20130716
  Transmission Date: 20140515
  Serious: Yes (Other)
  Sender: FDA-Public Use
  Company Number: PHHY2013DE075005

PATIENT
  Sex: Female

DRUGS (1)
  1. FEMARA [Suspect]
     Dosage: UNK UKN, UNK
     Route: 048
     Dates: start: 2009, end: 2012

REACTIONS (2)
  - Disease recurrence [Unknown]
  - Metastasis [Unknown]
